FAERS Safety Report 7885270-X (Version None)
Quarter: 2011Q4

REPORT INFORMATION
  Report Type: 
  Country: None (occurrence: None)
  Receive Date: 20111102
  Receipt Date: 20111026
  Transmission Date: 20120403
  Serious: Yes (Other)
  Sender: FDA-Public Use
  Company Number: CHPA2011US14915

PATIENT
  Age: 85 Year
  Sex: Female

DRUGS (4)
  1. LIPITOR [Concomitant]
     Route: 048
  2. QUINAPRIL [Concomitant]
     Indication: BLOOD PRESSURE
     Route: 048
  3. PLAVIX [Concomitant]
     Indication: CARDIOVASCULAR DISORDER
     Route: 048
  4. PREVACID 24 HR [Suspect]
     Dosage: 15 MG, QD
     Route: 048

REACTIONS (5)
  - COLON CANCER [None]
  - WRONG TECHNIQUE IN DRUG USAGE PROCESS [None]
  - INCORRECT DRUG ADMINISTRATION DURATION [None]
  - DYSPNOEA [None]
  - DRY MOUTH [None]
